FAERS Safety Report 7557458-9 (Version None)
Quarter: 2011Q2

REPORT INFORMATION
  Report Type: 
  Country: None (occurrence: None)
  Receive Date: 20110616
  Receipt Date: 20110616
  Transmission Date: 20111010
  Serious: No
  Sender: FDA-Public Use
  Company Number: None

PATIENT
  Age: 35 Year
  Sex: Female
  Weight: 62.5964 kg

DRUGS (1)
  1. CYMBALTA [Suspect]
     Indication: MENTAL DISORDER
     Dosage: 20 OR 30 MG ONCE DAILY
     Dates: start: 20091112, end: 20091202

REACTIONS (5)
  - PARAESTHESIA [None]
  - DIARRHOEA [None]
  - PANIC ATTACK [None]
  - SUICIDAL IDEATION [None]
  - INAPPROPRIATE SCHEDULE OF DRUG ADMINISTRATION [None]
